FAERS Safety Report 21962047 (Version 2)
Quarter: 2023Q2

REPORT INFORMATION
  Report Type: Spontaneous
  Country: BE (occurrence: BE)
  Receive Date: 20230207
  Receipt Date: 20230626
  Transmission Date: 20230722
  Serious: Yes (Life-Threatening, Other)
  Sender: FDA-Public Use
  Company Number: None

PATIENT
  Age: 31 Year
  Sex: Female
  Weight: 50 kg

DRUGS (1)
  1. CYTOTEC [Suspect]
     Active Substance: MISOPROSTOL
     Indication: Abortion
     Dosage: 400 MG, 1X/DAY (INSERT 2 TABLETS VAGINALLY IN THE EVENING)
     Route: 067
     Dates: start: 20220503, end: 20220504

REACTIONS (3)
  - Ectopic pregnancy [Recovering/Resolving]
  - Tubal rupture [Recovering/Resolving]
  - Off label use [Unknown]

NARRATIVE: CASE EVENT DATE: 20220503
